FAERS Safety Report 14221415 (Version 5)
Quarter: 2018Q1

REPORT INFORMATION
  Report Type: Spontaneous
  Country: CA (occurrence: CA)
  Receive Date: 20171124
  Receipt Date: 20180302
  Transmission Date: 20180508
  Serious: Yes (Hospitalization, Other)
  Sender: FDA-Public Use
  Company Number: CA-PFIZER INC-2017358720

PATIENT
  Age: 8 Year
  Sex: Male
  Weight: 22.5 kg

DRUGS (3)
  1. RAPAMUNE [Suspect]
     Active Substance: SIROLIMUS
     Indication: DIARRHOEA
     Dosage: 2 MG, DAILY
     Route: 048
  2. RAPAMUNE [Suspect]
     Active Substance: SIROLIMUS
     Indication: DIARRHOEA
     Dosage: UNK
  3. RAPAMUNE [Suspect]
     Active Substance: SIROLIMUS
     Dosage: 1 MG, ALTERNATE DAY
     Route: 048
     Dates: start: 20171112

REACTIONS (5)
  - Malabsorption [Unknown]
  - Product use issue [Unknown]
  - Stomatitis [Not Recovered/Not Resolved]
  - Anal ulcer [Unknown]
  - Medication residue present [Unknown]
